FAERS Safety Report 12124758 (Version 1)
Quarter: 2016Q1

REPORT INFORMATION
  Report Type: Spontaneous
  Country: US (occurrence: US)
  Receive Date: 20160229
  Receipt Date: 20160229
  Transmission Date: 20160526
  Serious: No
  Sender: FDA-Public Use
  Company Number: US-AMGEN-USASP2016023453

PATIENT
  Age: 43 Year
  Sex: Female

DRUGS (2)
  1. RHINOCORT                          /00212602/ [Concomitant]
     Dosage: UNK
  2. ENBREL [Suspect]
     Active Substance: ETANERCEPT
     Indication: PSORIASIS
     Dosage: 50 MG, 2 TIMES/WK
     Route: 058
     Dates: start: 201512

REACTIONS (2)
  - Injection site bruising [Unknown]
  - Wrong technique in product usage process [Recovered/Resolved]
